FAERS Safety Report 5795283-X (Version None)
Quarter: 2008Q2

REPORT INFORMATION
  Report Type: 
  Country: None (occurrence: None)
  Receive Date: 20080630
  Receipt Date: 20080616
  Transmission Date: 20081010
  Serious: No
  Sender: FDA-Public Use
  Company Number: US-ELI_LILLY_AND_COMPANY-US200805004552

PATIENT
  Sex: Female
  Weight: 50 kg

DRUGS (4)
  1. FORTEO [Suspect]
     Indication: OSTEOPOROSIS
     Dosage: 20 UG, DAILY (1/D)
     Dates: start: 20070604
  2. FORTEO [Suspect]
     Dosage: 20 UG, DAILY (1/D)
  3. CALCIUM [Concomitant]
  4. LOVASTATIN [Concomitant]

REACTIONS (7)
  - BLOOD CALCIUM INCREASED [None]
  - FATIGUE [None]
  - NAUSEA [None]
  - PRESYNCOPE [None]
  - PULMONARY GRANULOMA [None]
  - VIRAL INFECTION [None]
  - VOMITING [None]
